FAERS Safety Report 6786331-9 (Version None)
Quarter: 2010Q2

REPORT INFORMATION
  Report Type: 
  Country: None (occurrence: None)
  Receive Date: 20100623
  Receipt Date: 20100616
  Transmission Date: 20101027
  Serious: Yes (Other)
  Sender: FDA-Public Use
  Company Number: CR-ABBOTT-10P-039-0651729-00

PATIENT
  Sex: Female

DRUGS (1)
  1. LUCRIN DEPOT 11.25 MG [Suspect]
     Indication: ENDOMETRIOSIS
     Route: 058
     Dates: start: 20100401

REACTIONS (1)
  - GOITRE [None]
